FAERS Safety Report 5378879-9 (Version None)
Quarter: 2007Q3

REPORT INFORMATION
  Report Type: 
  Country: None (occurrence: None)
  Receive Date: 20070705
  Receipt Date: 20070627
  Transmission Date: 20080115
  Serious: No
  Sender: FDA-Public Use
  Company Number: DE-ELI_LILLY_AND_COMPANY-DE200707000081

PATIENT
  Age: 59 Year
  Sex: Male
  Weight: 82.4 kg

DRUGS (3)
  1. CIALIS [Suspect]
     Indication: ERECTILE DYSFUNCTION
     Dosage: 5 MG, DAILY (1/D)
     Route: 048
     Dates: start: 20070429
  2. EBASTINE [Concomitant]
     Indication: SEASONAL ALLERGY
     Dosage: 10 MG, DAILY (1/D)
     Route: 048
  3. NASONEX [Concomitant]
     Indication: SEASONAL ALLERGY
     Dosage: UNK, 2/D
     Route: 045

REACTIONS (4)
  - ABDOMINAL PAIN LOWER [None]
  - ERECTILE DYSFUNCTION [None]
  - TACHYCARDIA [None]
  - VISUAL ACUITY REDUCED [None]
